FAERS Safety Report 7596426-8 (Version None)
Quarter: 2011Q3

REPORT INFORMATION
  Report Type: 
  Country: None (occurrence: None)
  Receive Date: 20110707
  Receipt Date: 20110704
  Transmission Date: 20111222
  Serious: Yes (Other)
  Sender: FDA-Public Use
  Company Number: CA-ABBOTT-11P-028-0734260-00

PATIENT
  Sex: Female
  Weight: 45.4 kg

DRUGS (8)
  1. CARBAMAZEPINE [Concomitant]
     Indication: EPILEPSY
     Route: 048
  2. NOVO GESIE [Concomitant]
     Indication: PRODUCT USED FOR UNKNOWN INDICATION
  3. CELEBREX [Concomitant]
     Indication: PAIN
     Route: 048
  4. HUMIRA [Suspect]
     Route: 058
  5. PREDNISONE [Concomitant]
     Indication: CROHN'S DISEASE
  6. LIPITOR [Concomitant]
     Indication: BLOOD CHOLESTEROL INCREASED
  7. CIPROFLOXACIN [Concomitant]
     Indication: PRODUCT USED FOR UNKNOWN INDICATION
  8. HUMIRA [Suspect]
     Indication: CROHN'S DISEASE
     Route: 058
     Dates: start: 20080702

REACTIONS (10)
  - NEPHROLITHIASIS [None]
  - DEPRESSION [None]
  - URINARY TRACT INFECTION [None]
  - ABDOMINAL PAIN UPPER [None]
  - HYPOPHAGIA [None]
  - CROHN'S DISEASE [None]
  - VICTIM OF SEXUAL ABUSE [None]
  - DIARRHOEA [None]
  - HERPES VIRUS INFECTION [None]
  - PRURITUS GENERALISED [None]
